FAERS Safety Report 5587548-1 (Version None)
Quarter: 2008Q1

REPORT INFORMATION
  Report Type: 
  Country: None (occurrence: None)
  Receive Date: 20080107
  Receipt Date: 20071227
  Transmission Date: 20080703
  Serious: Yes (Other)
  Sender: FDA-Public Use
  Company Number: GXKR2007PL10999

PATIENT
  Age: 59 Year
  Sex: Female

DRUGS (1)
  1. METOHEXAL (NGX)(METOPROLOL) UNKNOWN [Suspect]
     Dosage: ORAL
     Route: 048
     Dates: start: 20061001, end: 20071025

REACTIONS (4)
  - CHEST DISCOMFORT [None]
  - CHEST PAIN [None]
  - NASAL OEDEMA [None]
  - TACHYCARDIA [None]
